FAERS Safety Report 11653294 (Version 1)
Quarter: 2015Q4

REPORT INFORMATION
  Report Type: Spontaneous
  Country: DE (occurrence: DE)
  Receive Date: 20151022
  Receipt Date: 20151022
  Transmission Date: 20160304
  Serious: Yes (Other)
  Sender: FDA-Public Use
  Company Number: DE-GUERBET LLC-1043279

PATIENT
  Age: 44 Year
  Sex: Female
  Weight: 110 kg

DRUGS (1)
  1. DOTAREM [Suspect]
     Active Substance: GADOTERATE MEGLUMINE
     Dates: start: 20151002, end: 20151002

REACTIONS (3)
  - Throat irritation [Recovered/Resolved]
  - Burning sensation [Recovered/Resolved]
  - Respiratory distress [Recovered/Resolved]

NARRATIVE: CASE EVENT DATE: 20151002
